FAERS Safety Report 5323808-7 (Version None)
Quarter: 2007Q2

REPORT INFORMATION
  Report Type: 
  Country: None (occurrence: None)
  Receive Date: 20070514
  Receipt Date: 20070507
  Transmission Date: 20071010
  Serious: Yes (Congenital Anomaly)
  Sender: FDA-Public Use
  Company Number: B0428330B

PATIENT

DRUGS (2)
  1. COMBIVIR [Suspect]
     Indication: HIV INFECTION
     Dosage: 2TAB PER DAY
  2. KALETRA [Suspect]
     Indication: HIV INFECTION
     Dosage: 10ML PER DAY

REACTIONS (3)
  - BRAIN NEOPLASM [None]
  - DRUG EXPOSURE DURING PREGNANCY [None]
  - RENAL DISORDER [None]
